FAERS Safety Report 16399188 (Version 1)
Quarter: 2019Q2

REPORT INFORMATION
  Report Type: Spontaneous
  Country: TW (occurrence: TW)
  Receive Date: 20190606
  Receipt Date: 20190606
  Transmission Date: 20190711
  Serious: Yes (Hospitalization, Other)
  Sender: FDA-Public Use
  Company Number: TW-ELI_LILLY_AND_COMPANY-TW201905016239

PATIENT
  Age: 60 Year
  Sex: Male

DRUGS (1)
  1. TALTZ [Suspect]
     Active Substance: IXEKIZUMAB
     Indication: PSORIASIS
     Dosage: UNK, OTHER (EVERY 4 WEEKS)
     Route: 065
     Dates: start: 20181113

REACTIONS (7)
  - Cellulitis [Unknown]
  - Tonsillar hypertrophy [Unknown]
  - Cough [Unknown]
  - Skin ulcer [Unknown]
  - Impaired healing [Unknown]
  - Lymphadenopathy [Unknown]
  - Oral candidiasis [Unknown]

NARRATIVE: CASE EVENT DATE: 201903
